FAERS Safety Report 14046616 (Version 1)
Quarter: 2017Q4

REPORT INFORMATION
  Report Type: Report from Study
  Country: US (occurrence: US)
  Receive Date: 20171005
  Receipt Date: 20171005
  Transmission Date: 20180321
  Serious: Yes (Death, Hospitalization, Other)
  Sender: FDA-Public Use
  Company Number: US-BAYER-2017-135821

PATIENT
  Age: 79 Year
  Sex: Male
  Weight: 87.09 kg

DRUGS (9)
  1. FLUTICASONE FUROATE [Concomitant]
     Active Substance: FLUTICASONE FUROATE
     Dosage: 100 ?G, QD
     Route: 055
     Dates: start: 20170516
  2. FLONASE [Concomitant]
     Active Substance: FLUTICASONE PROPIONATE
     Dosage: UNK UNK, QD
     Route: 045
     Dates: start: 20170424
  3. OXYGEN. [Concomitant]
     Active Substance: OXYGEN
     Dosage: UNK
     Route: 065
     Dates: start: 20170629
  4. PROAIR HFA [Concomitant]
     Active Substance: ALBUTEROL SULFATE
     Dosage: 90 ?G, QID
     Route: 055
     Dates: start: 20170516
  5. ALBUTEROL W/IPRATROPIUM [Concomitant]
     Active Substance: ALBUTEROL\IPRATROPIUM
     Dosage: 3 ML, QID
     Route: 065
     Dates: start: 20170516
  6. XARELTO [Suspect]
     Active Substance: RIVAROXABAN
     Indication: PULMONARY EMBOLISM
     Dosage: 15 MG, BID
     Route: 048
     Dates: start: 20170713
  7. ROFLUMILAST. [Concomitant]
     Active Substance: ROFLUMILAST
     Dosage: 500 ?G, QD
     Route: 048
     Dates: start: 20170605
  8. AZELASTINE. [Concomitant]
     Active Substance: AZELASTINE HYDROCHLORIDE
     Dosage: UNK UNK, QD
     Route: 045
     Dates: start: 20170424
  9. ACETYLSALICYLIC ACID({=100 MG) [Suspect]
     Active Substance: ASPIRIN
     Indication: PRODUCT USED FOR UNKNOWN INDICATION
     Dosage: UNK
     Route: 065

REACTIONS (4)
  - Pneumonia [Unknown]
  - Death [Fatal]
  - Haemorrhage subcutaneous [Recovering/Resolving]
  - Epistaxis [Recovered/Resolved]

NARRATIVE: CASE EVENT DATE: 20170724
